FAERS Safety Report 4390529-7 (Version None)
Quarter: 2004Q2

REPORT INFORMATION
  Report Type: 
  Country: None (occurrence: None)
  Receive Date: 20040630
  Receipt Date: 20040617
  Transmission Date: 20050107
  Serious: Yes (Hospitalization)
  Sender: FDA-Public Use
  Company Number: US-2004-025642

PATIENT
  Age: 25 Year
  Sex: Female

DRUGS (23)
  1. BETASERON [Suspect]
     Indication: MULTIPLE SCLEROSIS
     Dosage: 500 UG, EVERY 2 D, SUBCUTANEOUS
     Route: 058
  2. MULTIVITAMIN ^LAPPE^ (VITAMIN NOS) [Concomitant]
  3. NECON [Concomitant]
  4. AMANTADINE (AMANTADINE) [Concomitant]
  5. OXYBUTYNIN [Concomitant]
  6. LISINOPRIL [Concomitant]
  7. PREVACID [Concomitant]
  8. MOTRIN [Concomitant]
  9. TYLENOL PM (DIPHENHYDRAMINE) [Concomitant]
  10. ADVIL COLD + SINUS (PSEUDOEPHEDRINE HYDROCHLORIDE) [Concomitant]
  11. YOHIMBINE (YOHIMBINE) [Concomitant]
  12. ALEVE [Concomitant]
  13. ALLEGRA-D [Concomitant]
  14. MIDOL (ACETYLSALICYLIC ACID, PHENACETIN, CINNAMEDRINE) [Concomitant]
  15. SINGULAR ^MERCK^ (MONTELUKAST SODIUM) [Concomitant]
  16. BACLOFEN [Concomitant]
  17. REGLAN [Concomitant]
  18. NEURONTIN [Concomitant]
  19. TYLENOL W/ CODEINE NO. 3 [Concomitant]
  20. PROZAC [Concomitant]
  21. ALBUTEROL SULFATE AEROSOL [Concomitant]
  22. COMBIVENT (IPRATROPIUM BROMIDE) AEROSOL [Concomitant]
  23. PREDNISONE [Concomitant]

REACTIONS (7)
  - CARDIOMEGALY [None]
  - CHEST DISCOMFORT [None]
  - DIZZINESS [None]
  - DYSPNOEA EXACERBATED [None]
  - MULTIPLE SCLEROSIS [None]
  - MUSCULOSKELETAL DISORDER [None]
  - NERVOUS SYSTEM DISORDER [None]
